FAERS Safety Report 10766448 (Version 3)
Quarter: 2015Q2

REPORT INFORMATION
  Report Type: Spontaneous
  Country: US (occurrence: US)
  Receive Date: 20150205
  Receipt Date: 20150417
  Transmission Date: 20150821
  Serious: Yes (Hospitalization, Other)
  Sender: FDA-Public Use
  Company Number: US-GLAXOSMITHKLINE-US2015GSK013849

PATIENT
  Age: 51 Year
  Sex: Female
  Weight: 61.68 kg

DRUGS (9)
  1. CAPECITABINE. [Concomitant]
     Active Substance: CAPECITABINE
  2. ALEVE [Concomitant]
     Active Substance: NAPROXEN SODIUM
  3. TYKERB [Suspect]
     Active Substance: LAPATINIB DITOSYLATE
     Indication: BREAST CANCER
     Dosage: 1250 MG, QD
     Route: 048
     Dates: start: 201407
  4. TYLENOL [Concomitant]
     Active Substance: ACETAMINOPHEN
  5. IMODIUM [Concomitant]
     Active Substance: LOPERAMIDE HYDROCHLORIDE
  6. CALCIUM [Concomitant]
     Active Substance: CALCIUM
  7. KLOR-CON [Concomitant]
     Active Substance: POTASSIUM CHLORIDE
  8. PRILOSEC [Concomitant]
     Active Substance: OMEPRAZOLE MAGNESIUM
  9. IBUPROFEN. [Concomitant]
     Active Substance: IBUPROFEN

REACTIONS (8)
  - Dehydration [Unknown]
  - Skin disorder [Unknown]
  - Headache [Unknown]
  - Myocardial infarction [Unknown]
  - Blood potassium decreased [Unknown]
  - Diarrhoea [Unknown]
  - Pain [Unknown]
  - Erythema [Unknown]

NARRATIVE: CASE EVENT DATE: 20150410
